FAERS Safety Report 24189725 (Version 1)
Quarter: 2024Q3

REPORT INFORMATION
  Report Type: Spontaneous
  Country: US (occurrence: US)
  Receive Date: 20240808
  Receipt Date: 20240808
  Transmission Date: 20241016
  Serious: Yes (Hospitalization)
  Sender: Granulation Technology, INC
  Company Number: US-GTI-000258

PATIENT
  Age: 73 Year
  Sex: Male

DRUGS (3)
  1. PREDNISONE [Suspect]
     Active Substance: PREDNISONE
     Indication: Eosinophilic pneumonia chronic
     Dosage: 60 MG/DAY WITH PROLONGED TAPER
     Route: 048
  2. PREDNISONE [Suspect]
     Active Substance: PREDNISONE
     Indication: Eosinophilic pneumonia chronic
     Route: 048
  3. PREDNISONE [Suspect]
     Active Substance: PREDNISONE
     Indication: Eosinophilic pneumonia chronic
     Route: 048

REACTIONS (9)
  - Eosinophilic pneumonia chronic [Recovered/Resolved]
  - Disease recurrence [Recovered/Resolved]
  - Lymphadenopathy mediastinal [Unknown]
  - Ejection fraction decreased [Unknown]
  - Parainfluenzae virus infection [Unknown]
  - Osteopenia [Unknown]
  - Insulin resistance [Unknown]
  - Insomnia [Unknown]
  - Thrombocytopenia [Unknown]
